FAERS Safety Report 9582567 (Version 1)
Quarter: 2013Q4

REPORT INFORMATION
  Report Type: Spontaneous
  Country: US (occurrence: US)
  Receive Date: 20131002
  Receipt Date: 20131002
  Transmission Date: 20140711
  Serious: No
  Sender: FDA-Public Use
  Company Number: US-AMGEN-USASP2013041312

PATIENT
  Age: 64 Year
  Sex: Female
  Weight: 68.03 kg

DRUGS (12)
  1. ENBREL [Suspect]
     Indication: PRODUCT USED FOR UNKNOWN INDICATION
     Dosage: 50 MG, QWK
     Route: 058
  2. CELEBREX [Concomitant]
     Dosage: 400 MG, UNK
  3. SPIRIVA [Concomitant]
     Dosage: UNK
  4. APAP W/HYDROCODONE [Concomitant]
     Dosage: 10-650MG
  5. PRILOSEC                           /00661201/ [Concomitant]
     Dosage: 40 MG, UNK
  6. SEPTRA DS [Concomitant]
     Dosage: 800-160
  7. CALCIUM D                          /00944201/ [Concomitant]
     Dosage: UNK
  8. VITAMIN C                          /00008001/ [Concomitant]
     Dosage: 500 MG, UNK
  9. CENTRUM SILVER                     /02363801/ [Concomitant]
     Dosage: UNK
  10. XANAX [Concomitant]
     Dosage: 1 MG, UNK
  11. PREDNISONE [Concomitant]
     Dosage: 10 MG, UNK
  12. FLUTAMIDE [Concomitant]
     Dosage: 125 MG, UNK

REACTIONS (3)
  - Injection site pain [Unknown]
  - Injection site erythema [Unknown]
  - Injection site pruritus [Unknown]
